FAERS Safety Report 8515584-1 (Version None)
Quarter: 2012Q3

REPORT INFORMATION
  Report Type: 
  Country: None (occurrence: None)
  Receive Date: 20120717
  Receipt Date: 20120710
  Transmission Date: 20120928
  Serious: Yes (Other)
  Sender: FDA-Public Use
  Company Number: PHHY2012FR060762

PATIENT
  Age: 64 Year
  Sex: Female

DRUGS (4)
  1. ISONIAZID [Concomitant]
  2. ETHAMBUTOL HYDROCHLORIDE [Concomitant]
  3. RIFAMPICIN [Suspect]
     Indication: MENINGITIS TUBERCULOUS
  4. PYRAZINAMIDE [Concomitant]

REACTIONS (1)
  - DRUG INTOLERANCE [None]
